FAERS Safety Report 17653040 (Version 1)
Quarter: 2020Q2

REPORT INFORMATION
  Report Type: Spontaneous
  Country: US (occurrence: US)
  Receive Date: 20200409
  Receipt Date: 20200409
  Transmission Date: 20200713
  Serious: Yes (Death, Other)
  Sender: FDA-Public Use
  Company Number: NVSC2020US092143

PATIENT
  Age: 62 Year
  Sex: Female
  Weight: 62.22 kg

DRUGS (2)
  1. CABOMETYX [Suspect]
     Active Substance: CABOZANTINIB S-MALATE
     Indication: RENAL CANCER
     Dosage: 40 MG, QD
     Route: 048
  2. AFINITOR [Suspect]
     Active Substance: EVEROLIMUS
     Indication: RENAL CANCER
     Route: 065

REACTIONS (10)
  - Lung disorder [Unknown]
  - Renal cancer [Unknown]
  - Pain in extremity [Unknown]
  - Diarrhoea [Unknown]
  - Malignant neoplasm progression [Unknown]
  - Dermatitis psoriasiform [Unknown]
  - Splenic lesion [Unknown]
  - Nausea [Unknown]
  - Death [Fatal]
  - Peripheral swelling [Recovering/Resolving]

NARRATIVE: CASE EVENT DATE: 201909
